FAERS Safety Report 7646909-7 (Version None)
Quarter: 2011Q3

REPORT INFORMATION
  Report Type: 
  Country: None (occurrence: None)
  Receive Date: 20110711
  Receipt Date: 20110316
  Transmission Date: 20111222
  Serious: Yes (Other)
  Sender: FDA-Public Use
  Company Number: IPC201103-000329

PATIENT

DRUGS (3)
  1. METOCLOPRAMIDE HYDROCHLORIDE [Suspect]
     Dosage: ORAL
     Route: 048
     Dates: start: 19850101, end: 20100324
  2. REGLAN [Suspect]
     Dosage: ORAL
     Route: 048
     Dates: start: 19850101, end: 20100324
  3. METOCLOPRAMIDE [Suspect]
     Dosage: ORAL
     Route: 048
     Dates: start: 19850101, end: 20100324

REACTIONS (3)
  - TARDIVE DYSKINESIA [None]
  - TREMOR [None]
  - EXTRAPYRAMIDAL DISORDER [None]
